FAERS Safety Report 8934772 (Version 5)
Quarter: 2013Q1

REPORT INFORMATION
  Report Type: Report from Study
  Country: US (occurrence: US)
  Receive Date: 20121129
  Receipt Date: 20130328
  Transmission Date: 20140127
  Serious: Yes (Hospitalization, Other)
  Sender: FDA-Public Use
  Company Number: US-ASTELLAS-2012US011452

PATIENT
  Age: 50 Year
  Sex: Female
  Weight: 77 kg

DRUGS (10)
  1. ERLOTINIB TABLET [Suspect]
     Indication: LUNG CARCINOMA CELL TYPE UNSPECIFIED STAGE IV
     Dosage: 100 MG, UID/QD
     Route: 048
     Dates: start: 20121015, end: 20121104
  2. ERLOTINIB TABLET [Suspect]
     Dosage: 50 MG, UID/QD
     Route: 048
     Dates: start: 20121105, end: 20121115
  3. AZD6244 HYDROGEN SULFATE [Suspect]
     Indication: LUNG CARCINOMA CELL TYPE UNSPECIFIED STAGE IV
     Dosage: 150 MG, UID/QD
     Route: 048
     Dates: start: 20121015
  4. AZD6244 HYDROGEN SULFATE [Suspect]
     Dosage: UNK MG, UID/QD
     Route: 048
     Dates: end: 20121115
  5. ARIXTRA [Suspect]
     Indication: PRODUCT USED FOR UNKNOWN INDICATION
     Dosage: UNK
     Route: 065
     Dates: start: 20121203
  6. CHERATUSSIN AC [Concomitant]
     Indication: PRODUCT USED FOR UNKNOWN INDICATION
     Dosage: UNK
     Route: 065
  7. DUONEB [Concomitant]
     Indication: PRODUCT USED FOR UNKNOWN INDICATION
     Dosage: UNK
     Route: 065
  8. LORAZEPAM [Concomitant]
     Indication: PRODUCT USED FOR UNKNOWN INDICATION
     Dosage: UNK
     Route: 065
  9. MONOCYCLINE [Concomitant]
     Indication: PRODUCT USED FOR UNKNOWN INDICATION
     Dosage: UNK
     Route: 065
  10. TRIAZOLAM [Concomitant]
     Indication: PRODUCT USED FOR UNKNOWN INDICATION
     Dosage: UNK
     Route: 065

REACTIONS (9)
  - Incorrect dose administered [Unknown]
  - Pulmonary embolism [Recovered/Resolved with Sequelae]
  - Musculoskeletal chest pain [Recovered/Resolved]
  - Hypoxia [Recovered/Resolved with Sequelae]
  - Dyspnoea [Recovering/Resolving]
  - Rash [Unknown]
  - Mucosal inflammation [Unknown]
  - Drug eruption [Unknown]
  - Malignant neoplasm progression [Unknown]
